FAERS Safety Report 6634440-7 (Version None)
Quarter: 2010Q1

REPORT INFORMATION
  Report Type: 
  Country: None (occurrence: None)
  Receive Date: 20100315
  Receipt Date: 20100301
  Transmission Date: 20100710
  Serious: No
  Sender: FDA-Public Use
  Company Number: US-B.I. PHARMACEUTICALS,INC./RIDGEFIELD-2010-BP-02487BP

PATIENT
  Sex: Male

DRUGS (13)
  1. SPIRIVA [Suspect]
     Indication: CHRONIC OBSTRUCTIVE PULMONARY DISEASE
     Dosage: 18 MCG
     Route: 055
     Dates: start: 20070101
  2. SPIRIVA [Suspect]
     Indication: EMPHYSEMA
  3. SPIRIVA [Suspect]
     Indication: ASTHMA
  4. ADVAIR DISKUS 100/50 [Concomitant]
     Indication: CHRONIC OBSTRUCTIVE PULMONARY DISEASE
  5. ADVAIR DISKUS 100/50 [Concomitant]
     Indication: EMPHYSEMA
  6. ADVAIR DISKUS 100/50 [Concomitant]
     Indication: ASTHMA
  7. PROVENTIL [Concomitant]
     Indication: CHRONIC OBSTRUCTIVE PULMONARY DISEASE
  8. PROVENTIL [Concomitant]
     Indication: EMPHYSEMA
  9. PROVENTIL [Concomitant]
     Indication: ASTHMA
  10. LAMICTAL CD [Concomitant]
     Indication: BIPOLAR DISORDER
  11. ALBUTEROL [Concomitant]
     Indication: CHRONIC OBSTRUCTIVE PULMONARY DISEASE
  12. ALBUTEROL [Concomitant]
     Indication: EMPHYSEMA
  13. ALBUTEROL [Concomitant]
     Indication: ASTHMA

REACTIONS (3)
  - BREATH ALCOHOL TEST POSITIVE [None]
  - CONSTIPATION [None]
  - VISION BLURRED [None]
